FAERS Safety Report 7994444-9 (Version None)
Quarter: 2011Q4

REPORT INFORMATION
  Report Type: 
  Country: None (occurrence: None)
  Receive Date: 20111220
  Receipt Date: 20111003
  Transmission Date: 20120403
  Serious: No
  Sender: FDA-Public Use
  Company Number: US-GLAXOSMITHKLINE-A0946796A

PATIENT
  Age: 60 Year
  Sex: Female

DRUGS (5)
  1. LAMICTAL XR [Suspect]
     Indication: HEADACHE
     Dosage: 50MG PER DAY
     Route: 048
     Dates: start: 20110701, end: 20110929
  2. OMEGA 3 FATTY ACIDS [Concomitant]
  3. EXCEDRIN (MIGRAINE) [Concomitant]
  4. SYNTHROID [Concomitant]
  5. VITAMIN B6 [Concomitant]

REACTIONS (19)
  - HYPERHIDROSIS [None]
  - WEIGHT INCREASED [None]
  - ABDOMINAL DISCOMFORT [None]
  - LIP SWELLING [None]
  - SWOLLEN TONGUE [None]
  - FLATULENCE [None]
  - ORAL DISCOMFORT [None]
  - SWELLING [None]
  - MYALGIA [None]
  - MALAISE [None]
  - DIARRHOEA [None]
  - OEDEMA PERIPHERAL [None]
  - OEDEMA [None]
  - CHILLS [None]
  - ABDOMINAL PAIN UPPER [None]
  - CONDITION AGGRAVATED [None]
  - PRURITUS [None]
  - VOMITING [None]
  - CONSTIPATION [None]
